FAERS Safety Report 16071856 (Version 1)
Quarter: 2019Q1

REPORT INFORMATION
  Report Type: Other
  Country: CH (occurrence: CH)
  Receive Date: 20190314
  Receipt Date: 20190314
  Transmission Date: 20190418
  Serious: Yes (Hospitalization)
  Sender: FDA-Public Use
  Company Number: CH-AJANTA PHARMA USA INC.-2063978

PATIENT
  Age: 66 Year
  Sex: Male

DRUGS (6)
  1. QUETIAPINE. [Suspect]
     Active Substance: QUETIAPINE
  2. RISPERIDONE. [Suspect]
     Active Substance: RISPERIDONE
     Indication: BIPOLAR I DISORDER
  3. VALPROIC ACID. [Concomitant]
     Active Substance: VALPROIC ACID
  4. CLOZAPINE. [Suspect]
     Active Substance: CLOZAPINE
  5. AZATHIOPRINE. [Concomitant]
     Active Substance: AZATHIOPRINE
  6. MESALAMINE. [Concomitant]
     Active Substance: MESALAMINE

REACTIONS (4)
  - Anticholinergic syndrome [Recovered/Resolved]
  - Overdose [Recovered/Resolved]
  - Catatonia [Recovered/Resolved]
  - Drug interaction [Recovered/Resolved]
